FAERS Safety Report 4559098-2 (Version None)
Quarter: 2005Q1

REPORT INFORMATION
  Report Type: 
  Country: None (occurrence: None)
  Receive Date: 20050119
  Receipt Date: 20050111
  Transmission Date: 20050727
  Serious: Yes (Life-Threatening, Disabling)
  Sender: FDA-Public Use
  Company Number: 2004JP002212

PATIENT
  Age: 6 Year
  Sex: Male
  Weight: 29.1 kg

DRUGS (5)
  1. PROGRAF [Suspect]
     Indication: LIVER TRANSPLANT
     Dates: start: 20010520, end: 20010702
  2. ZOVIRAX                    (ACICLOVIR SODIUM) GRANULE [Concomitant]
  3. BACTRAMIN     (SULFAMETHOXAZOLE, TRIMETHOPRIM) GRANULE [Concomitant]
  4. CELLCEPT [Concomitant]
  5. BIOFERMIN R (STREPTOCOCCUS FAECALIS) [Concomitant]

REACTIONS (14)
  - AFFECT LABILITY [None]
  - AMNESIA [None]
  - ATTENTION DEFICIT/HYPERACTIVITY DISORDER [None]
  - CONVULSION [None]
  - DEPRESSED LEVEL OF CONSCIOUSNESS [None]
  - DIARRHOEA [None]
  - DRUG LEVEL INCREASED [None]
  - ENCEPHALOPATHY [None]
  - HYPOMETABOLISM [None]
  - LARGE INTESTINE PERFORATION [None]
  - MENTAL RETARDATION SEVERITY UNSPECIFIED [None]
  - NUCLEAR MAGNETIC RESONANCE IMAGING BRAIN ABNORMAL [None]
  - RESPIRATORY ARREST [None]
  - VOMITING [None]
